FAERS Safety Report 19073418 (Version 1)
Quarter: 2021Q1

REPORT INFORMATION
  Report Type: Other
  Country: SG (occurrence: SG)
  Receive Date: 20210330
  Receipt Date: 20210330
  Transmission Date: 20210420
  Serious: Yes (Other)
  Sender: FDA-Public Use
  Company Number: SG-ROCHE-2738965

PATIENT
  Age: 56 Year
  Sex: Female

DRUGS (6)
  1. PERJETA [Suspect]
     Active Substance: PERTUZUMAB
     Indication: BREAST CANCER
     Route: 065
  2. VALSARTAN. [Concomitant]
     Active Substance: VALSARTAN
  3. SPIRONOLACTONE. [Concomitant]
     Active Substance: SPIRONOLACTONE
  4. HERCEPTIN [Suspect]
     Active Substance: TRASTUZUMAB
     Indication: BREAST CANCER
     Route: 042
  5. BISOPROLOL [Concomitant]
     Active Substance: BISOPROLOL
  6. ROSUVASTATIN. [Concomitant]
     Active Substance: ROSUVASTATIN

REACTIONS (7)
  - Cardiac disorder [Unknown]
  - Cardiomyopathy [Unknown]
  - Ventricular hypokinesia [Unknown]
  - Myocardial ischaemia [Unknown]
  - Ischaemia [Unknown]
  - Myocardial infarction [Unknown]
  - Ejection fraction decreased [Unknown]
